FAERS Safety Report 9521882 (Version 2)
Quarter: 2014Q1

REPORT INFORMATION
  Report Type: Spontaneous
  Country: FR (occurrence: FR)
  Receive Date: 20130913
  Receipt Date: 20140116
  Transmission Date: 20141002
  Serious: Yes (Death, Other)
  Sender: FDA-Public Use
  Company Number: FR-009507513-1309FRA002231

PATIENT
  Age: 72 Year
  Sex: Male

DRUGS (6)
  1. JANUMET [Suspect]
     Dosage: 1 DF, BID
     Route: 048
     Dates: start: 20130710, end: 20130717
  2. JANUMET [Suspect]
     Dosage: 0.5 DF, BID
     Route: 048
     Dates: start: 20130717, end: 20130804
  3. KARDEGIC [Concomitant]
  4. TAHOR [Concomitant]
  5. TRUSOPT [Concomitant]
  6. NATISPRAY [Concomitant]
     Dosage: UNK UNK, BID

REACTIONS (5)
  - Cardiac arrest [Fatal]
  - Chest pain [Fatal]
  - Malaise [Fatal]
  - Hypoglycaemia [Fatal]
  - Wrong technique in drug usage process [Unknown]
